FAERS Safety Report 9881730 (Version 1)
Quarter: 2014Q1

REPORT INFORMATION
  Report Type: Spontaneous
  Country: CH (occurrence: CH)
  Receive Date: 20140207
  Receipt Date: 20140207
  Transmission Date: 20141002
  Serious: Yes (Life-Threatening, Hospitalization, Other)
  Sender: FDA-Public Use
  Company Number: CH-SA-2014SA012627

PATIENT
  Age: 62 Year
  Sex: Male
  Weight: 64 kg

DRUGS (9)
  1. ELOXATIN [Suspect]
     Indication: COLON CANCER
     Dosage: FORM: INFUSION AMPOULES, VIALS/BOTTLES?1 PER 1 CYCLIC
     Route: 041
     Dates: start: 20130404, end: 201308
  2. XELODA [Suspect]
     Indication: COLON CANCER
     Dosage: 24 PER 1 CYCLIC?3-0-3 P.O DAYS 1-4
     Route: 048
     Dates: start: 20130404, end: 201309
  3. AVASTIN [Suspect]
     Indication: COLON CANCER
     Dosage: FORM:VIALS?1 PER 1 CYCLIC
     Route: 041
     Dates: start: 20130404, end: 201309
  4. PLAVIX [Concomitant]
     Indication: ACUTE MYOCARDIAL INFARCTION
     Route: 048
     Dates: start: 20130405
  5. ASPIRIN CARDIO [Concomitant]
     Indication: ACUTE MYOCARDIAL INFARCTION
     Route: 048
     Dates: start: 20130405
  6. TENORMIN [Concomitant]
     Route: 048
  7. ENALAPRIL MALEATE [Concomitant]
  8. PANTOZOL [Concomitant]
     Route: 048
  9. TRANSIPEG [Concomitant]

REACTIONS (4)
  - Myocardial infarction [Recovered/Resolved]
  - Polyneuropathy [Unknown]
  - Bacterial infection [Not Recovered/Not Resolved]
  - Systemic inflammatory response syndrome [Not Recovered/Not Resolved]
